FAERS Safety Report 25195429 (Version 2)
Quarter: 2025Q3

REPORT INFORMATION
  Report Type: Report from Study
  Country: US (occurrence: US)
  Receive Date: 20250415
  Receipt Date: 20250724
  Transmission Date: 20251021
  Serious: Yes (Other)
  Sender: JOHNSON AND JOHNSON
  Company Number: US-JNJFOC-20250411063

PATIENT
  Age: 34 Year
  Sex: Male

DRUGS (3)
  1. STELARA [Suspect]
     Active Substance: USTEKINUMAB
     Indication: Colitis ulcerative
     Route: 040
     Dates: start: 20250211
  2. STELARA [Suspect]
     Active Substance: USTEKINUMAB
     Indication: Colitis ulcerative
     Route: 058
     Dates: start: 202506
  3. STELARA [Suspect]
     Active Substance: USTEKINUMAB

REACTIONS (7)
  - Epididymitis [Unknown]
  - Influenza [Not Recovered/Not Resolved]
  - Sinusitis [Recovered/Resolved]
  - Rash pruritic [Recovered/Resolved]
  - Dry mouth [Unknown]
  - COVID-19 [Unknown]
  - Headache [Unknown]

NARRATIVE: CASE EVENT DATE: 20250220
